FAERS Safety Report 25285106 (Version 1)
Quarter: 2025Q2

REPORT INFORMATION
  Report Type: Spontaneous
  Country: US (occurrence: US)
  Receive Date: 20250509
  Receipt Date: 20250509
  Transmission Date: 20250716
  Serious: No
  Sender: TOLMAR
  Company Number: CID000000000000178

PATIENT
  Age: 59 Year
  Sex: Male
  Weight: 87.7 kg

DRUGS (2)
  1. ELIGARD [Suspect]
     Active Substance: LEUPROLIDE ACETATE
     Indication: Prostate cancer
     Dosage: EXPIRATION DATE: 30-SEP-2026; UNK; UNK
  2. ELIGARD [Suspect]
     Active Substance: LEUPROLIDE ACETATE
     Indication: Prostate cancer

REACTIONS (2)
  - Intercepted medication error [Unknown]
  - Device defective [Unknown]

NARRATIVE: CASE EVENT DATE: 20250408
